FAERS Safety Report 9912098 (Version 3)
Quarter: 2014Q1

REPORT INFORMATION
  Report Type: Report from Study
  Country: CA (occurrence: CA)
  Receive Date: 20140219
  Receipt Date: 20140317
  Transmission Date: 20141002
  Serious: Yes (Other)
  Sender: FDA-Public Use
  Company Number: CA-BRISTOL-MYERS SQUIBB COMPANY-19028976

PATIENT
  Age: 70 Year
  Sex: Female

DRUGS (11)
  1. GABAPENTIN [Concomitant]
  2. CLONIDINE [Concomitant]
  3. ORENCIA [Suspect]
     Indication: RHEUMATOID ARTHRITIS
     Dosage: 1 DF= 750.?ONGOING.?LOT#3J75953?EXPIRY:JUL2016
     Route: 042
     Dates: start: 20130416
  4. VITAMIN D [Concomitant]
  5. CALTRATE [Concomitant]
  6. OXYCOCET [Concomitant]
  7. FOLIC ACID [Concomitant]
  8. AMITRIPTYLINE [Concomitant]
  9. PARIET [Concomitant]
  10. HYDROMORPH CONTIN [Concomitant]
  11. PLAQUENIL [Concomitant]

REACTIONS (3)
  - Carpal tunnel syndrome [Recovering/Resolving]
  - Bone disorder [Unknown]
  - Localised infection [Not Recovered/Not Resolved]
